FAERS Safety Report 6400180-2 (Version None)
Quarter: 2009Q4

REPORT INFORMATION
  Report Type: 
  Country: None (occurrence: None)
  Receive Date: 20091014
  Receipt Date: 20091001
  Transmission Date: 20100525
  Serious: Yes (Hospitalization)
  Sender: FDA-Public Use
  Company Number: CH-ELI_LILLY_AND_COMPANY-CH200910000623

PATIENT
  Age: 70 Year
  Sex: Male
  Weight: 80 kg

DRUGS (2)
  1. CIALIS [Suspect]
     Indication: ERECTILE DYSFUNCTION
     Dosage: 5 MG, DAILY (1/D)
     Route: 048
     Dates: start: 20070701, end: 20070901
  2. CIALIS [Suspect]
     Dosage: 10-20 MG, AS NEEDED (APPROXIMATELY ONCE A WEEK)
     Route: 048
     Dates: start: 20070901

REACTIONS (1)
  - CEREBRAL HAEMORRHAGE [None]
